FAERS Safety Report 16270526 (Version 3)
Quarter: 2019Q3

REPORT INFORMATION
  Report Type: Report from Study
  Country: US (occurrence: US)
  Receive Date: 20190503
  Receipt Date: 20190828
  Transmission Date: 20191004
  Serious: Yes (Death, Hospitalization, Other)
  Sender: FDA-Public Use
  Company Number: US-EXELIXIS-CABO-19020248

PATIENT
  Sex: Male

DRUGS (32)
  1. TYLENOL [Concomitant]
     Active Substance: ACETAMINOPHEN
  2. PERCOCET [Concomitant]
     Active Substance: ACETAMINOPHEN\OXYCODONE HYDROCHLORIDE
  3. ATIVAN [Concomitant]
     Active Substance: LORAZEPAM
  4. CABOMETYX [Suspect]
     Active Substance: CABOZANTINIB S-MALATE
     Dosage: 60 MG, QOD
     Route: 048
     Dates: start: 2018
  5. LISINOPRIL. [Concomitant]
     Active Substance: LISINOPRIL
  6. AUGMENTIN [Concomitant]
     Active Substance: AMOXICILLIN\CLAVULANATE POTASSIUM
  7. MECLIZINE [Concomitant]
     Active Substance: MECLIZINE HYDROCHLORIDE
  8. MEGESTROL [Concomitant]
     Active Substance: MEGESTROL
  9. PREDNISONE. [Concomitant]
     Active Substance: PREDNISONE
  10. MEGACE [Concomitant]
     Active Substance: MEGESTROL ACETATE
  11. ROBITUSSIN (GUAIFENESIN) [Concomitant]
     Active Substance: GUAIFENESIN
  12. CABOMETYX [Suspect]
     Active Substance: CABOZANTINIB S-MALATE
     Dosage: 40 MG, QD
     Route: 048
     Dates: start: 20181116, end: 20190319
  13. FINASTERIDE. [Concomitant]
     Active Substance: FINASTERIDE
  14. AMLODIPINE [Concomitant]
     Active Substance: AMLODIPINE BESYLATE
  15. CLARITIN [Concomitant]
     Active Substance: LORATADINE
  16. ELIQUIS [Concomitant]
     Active Substance: APIXABAN
  17. AVAPRO [Concomitant]
     Active Substance: IRBESARTAN
  18. DECADRON [Concomitant]
     Active Substance: DEXAMETHASONE
  19. CABOMETYX [Suspect]
     Active Substance: CABOZANTINIB S-MALATE
     Indication: METASTATIC RENAL CELL CARCINOMA
     Dosage: 60 MG, QD
     Route: 048
     Dates: start: 20180907, end: 2018
  20. OMEPRAZOLE. [Concomitant]
     Active Substance: OMEPRAZOLE
  21. LEVOTHYROXIN [Concomitant]
     Active Substance: LEVOTHYROXINE
  22. LORAZEPAM. [Concomitant]
     Active Substance: LORAZEPAM
  23. SYNTHROID [Concomitant]
     Active Substance: LEVOTHYROXINE SODIUM
  24. NIVOLUMAB [Concomitant]
     Active Substance: NIVOLUMAB
  25. METOPROLOL SUCCINATE. [Concomitant]
     Active Substance: METOPROLOL SUCCINATE
  26. TESSALON [Concomitant]
     Active Substance: BENZONATATE
  27. OMNICEF [Concomitant]
     Active Substance: CEFDINIR
  28. AXITINIB [Concomitant]
     Active Substance: AXITINIB
  29. ZOFRAN [Concomitant]
     Active Substance: ONDANSETRON HYDROCHLORIDE
  30. NYSTATIN. [Concomitant]
     Active Substance: NYSTATIN
  31. OXYCODONE AND ACETAMINOPHEN [Concomitant]
     Active Substance: ACETAMINOPHEN\OXYCODONE HYDROCHLORIDE
  32. PROPECIA [Concomitant]
     Active Substance: FINASTERIDE

REACTIONS (11)
  - Pleural effusion [Fatal]
  - Infrequent bowel movements [Unknown]
  - Anaemia [Unknown]
  - Encephalopathy [Unknown]
  - Thrombophlebitis superficial [Unknown]
  - Pneumonia [Fatal]
  - Malignant neoplasm progression [Fatal]
  - Acute kidney injury [Unknown]
  - Acute respiratory failure [Unknown]
  - Hyperthyroidism [Unknown]
  - Cellulitis [Unknown]

NARRATIVE: CASE EVENT DATE: 2018
